FAERS Safety Report 11430880 (Version 1)
Quarter: 2015Q3

REPORT INFORMATION
  Report Type: Spontaneous
  Country: US (occurrence: US)
  Receive Date: 20150828
  Receipt Date: 20150828
  Transmission Date: 20151125
  Serious: No
  Sender: FDA-Public Use
  Company Number: US-ROCHE-1205237

PATIENT
  Sex: Female

DRUGS (2)
  1. RIBAVIRIN. [Suspect]
     Active Substance: RIBAVIRIN
     Indication: HEPATITIS C
     Dosage: DAILY DIVIDED DOSES
     Route: 065
     Dates: start: 20101201
  2. PEGASYS [Suspect]
     Active Substance: PEGINTERFERON ALFA-2A
     Indication: HEPATITIS C
     Route: 065
     Dates: start: 20101201

REACTIONS (8)
  - Abdominal discomfort [Unknown]
  - Product quality issue [Unknown]
  - Confusional state [Unknown]
  - Red blood cell count decreased [Unknown]
  - Weight decreased [Unknown]
  - Pruritus [Unknown]
  - Alopecia [Unknown]
  - Gastrointestinal disorder [Unknown]
